FAERS Safety Report 4355550-3 (Version None)
Quarter: 2004Q2

REPORT INFORMATION
  Report Type: 
  Country: None (occurrence: None)
  Receive Date: 20040505
  Receipt Date: 20030407
  Transmission Date: 20050107
  Serious: No
  Sender: FDA-Public Use
  Company Number: 10037394-NA01-1

PATIENT
  Age: 4 Year
  Sex: Female

DRUGS (2)
  1. ARB2323 LACTATED RINGERS INJ [Suspect]
     Indication: DEHYDRATION
     Dosage: 500ML, CONTINUOUS, INTRAVENOUS
     Route: 042
     Dates: start: 20030121
  2. METOCLOPRAMIDE [Concomitant]

REACTIONS (3)
  - HYPERSENSITIVITY [None]
  - RASH [None]
  - URTICARIA [None]
